FAERS Safety Report 4381209-2 (Version None)
Quarter: 2004Q2

REPORT INFORMATION
  Report Type: 
  Country: None (occurrence: None)
  Receive Date: 20040617
  Receipt Date: 20040617
  Transmission Date: 20050107
  Serious: Yes (Life-Threatening)
  Sender: FDA-Public Use
  Company Number: None

PATIENT
  Sex: Female
  Weight: 52 kg

DRUGS (3)
  1. CONCERTA [Suspect]
     Indication: PSYCHOMOTOR HYPERACTIVITY
     Dosage: 54 MG QD X 3 YEARS
  2. NEOSYNEPHRIENE 1% NASAL SPRAY BAYER [Suspect]
     Indication: EPISTAXIS
     Dosage: 3 NASAL SPRAYS
     Route: 045
  3. NEOSYNEPHRIENE 1% NASAL SPRAY BAYER [Suspect]
     Indication: PROPHYLAXIS
     Dosage: 3 NASAL SPRAYS
     Route: 045

REACTIONS (3)
  - DRUG INTERACTION [None]
  - HYPERTENSION [None]
  - PULMONARY OEDEMA [None]
